FAERS Safety Report 6588129-3 (Version None)
Quarter: 2010Q1

REPORT INFORMATION
  Report Type: 
  Country: None (occurrence: None)
  Receive Date: 20100202
  Receipt Date: 20090908
  Transmission Date: 20100710
  Serious: No
  Sender: FDA-Public Use
  Company Number: 2009-00589

PATIENT
  Age: 53 Year
  Sex: Male
  Weight: 113.3993 kg

DRUGS (2)
  1. ZICAM COLD REMEDY GEL SWABS [Suspect]
     Dosage: 4-5 SWABS; 6 MONTHS AGO- 4-5 SWABS
  2. ZICAM COLD REMEDY ORAL MIST [Suspect]
     Dosage: 3-4 DOSES; PRIOR TO ASW- 3-4 DOSES

REACTIONS (1)
  - ANOSMIA [None]
